FAERS Safety Report 10700153 (Version 1)
Quarter: 2015Q1

REPORT INFORMATION
  Report Type: Spontaneous
  Country: RS (occurrence: None)
  Receive Date: 20150107
  Receipt Date: 20150107
  Transmission Date: 20150721
  Serious: Yes (Death)
  Sender: FDA-Public Use
  Company Number: FK201406521

PATIENT

DRUGS (2)
  1. HALOPERIDOL INJECTION (MANUFACTURER UNKNOWN) (HALOPERIDOL LACTATE) (HALOPERIDOL LACTATE) [Suspect]
     Active Substance: HALOPERIDOL LACTATE
     Indication: PRODUCT USED FOR UNKNOWN INDICATION
  2. FLUPHENAZINE [Suspect]
     Active Substance: FLUPHENAZINE
     Indication: PRODUCT USED FOR UNKNOWN INDICATION

REACTIONS (2)
  - Toxicity to various agents [None]
  - Neuroleptic malignant syndrome [None]
